FAERS Safety Report 24560985 (Version 2)
Quarter: 2025Q1

REPORT INFORMATION
  Report Type: Spontaneous
  Country: US (occurrence: US)
  Receive Date: 20241029
  Receipt Date: 20250312
  Transmission Date: 20250409
  Serious: Yes (Other)
  Sender: AUROBINDO
  Company Number: US-MLMSERVICE-20241011-PI223021-00271-1

PATIENT
  Age: 45 Year
  Sex: Female

DRUGS (8)
  1. CLOBETASOL PROPIONATE [Suspect]
     Active Substance: CLOBETASOL PROPIONATE
     Indication: Rash erythematous
     Route: 061
  2. CLOBETASOL PROPIONATE [Suspect]
     Active Substance: CLOBETASOL PROPIONATE
     Indication: Dermatitis atopic
  3. PREDNISONE [Suspect]
     Active Substance: PREDNISONE
     Indication: Rash erythematous
     Route: 048
  4. PREDNISONE [Suspect]
     Active Substance: PREDNISONE
     Indication: Dermatitis atopic
     Route: 065
  5. DOXYCYCLINE [Suspect]
     Active Substance: DOXYCYCLINE
     Indication: Rash erythematous
     Route: 065
  6. DOXYCYCLINE [Suspect]
     Active Substance: DOXYCYCLINE
     Indication: Dermatitis atopic
  7. SECUKINUMAB [Concomitant]
     Active Substance: SECUKINUMAB
     Indication: Psoriasis
     Route: 065
  8. MUPIROCIN [Concomitant]
     Active Substance: MUPIROCIN

REACTIONS (6)
  - Dermatitis atopic [Unknown]
  - Eczema impetiginous [Unknown]
  - Eczema [Unknown]
  - Paradoxical drug reaction [Unknown]
  - Psoriasis [Unknown]
  - Staphylococcal infection [Unknown]
